FAERS Safety Report 5022116-1 (Version None)
Quarter: 2006Q2

REPORT INFORMATION
  Report Type: 
  Country: None (occurrence: None)
  Receive Date: 20060609
  Receipt Date: 20060601
  Transmission Date: 20061013
  Serious: Yes (Other)
  Sender: FDA-Public Use
  Company Number: DE-AVENTIS-200611626DE

PATIENT
  Age: 74 Year
  Sex: Female

DRUGS (2)
  1. NOVALGIN [Suspect]
     Indication: PAIN
  2. CLEXANE [Suspect]
     Dosage: DOSE: NOT REPORTED
     Route: 058

REACTIONS (6)
  - APHTHOUS STOMATITIS [None]
  - CELLULITIS [None]
  - EOSINOPHIL COUNT INCREASED [None]
  - NEUTROPENIA [None]
  - PYREXIA [None]
  - THROMBOCYTOPENIA [None]
